FAERS Safety Report 8173294-7 (Version None)
Quarter: 2012Q1

REPORT INFORMATION
  Report Type: 
  Country: None (occurrence: None)
  Receive Date: 20120104
  Receipt Date: 20111202
  Transmission Date: 20120608
  Serious: No
  Sender: FDA-Public Use
  Company Number: 2011HGS-002568

PATIENT
  Age: 49 Year
  Sex: Male

DRUGS (3)
  1. PLAQUENIL (HYDROXYCHLOROQUINE SULFATE) (HYDROXYCHLOQUINE SULFATE) [Concomitant]
  2. BENLYSTA [Suspect]
     Indication: SYSTEMIC LUPUS ERYTHEMATOSUS
     Dosage: 10 MG/KGM INTRAVENOUS DRIP
     Route: 041
     Dates: start: 20110626
  3. IMURAN [Concomitant]

REACTIONS (2)
  - PANIC ATTACK [None]
  - JOINT SWELLING [None]
